FAERS Safety Report 9923161 (Version 1)
Quarter: 2014Q1

REPORT INFORMATION
  Report Type: Spontaneous
  Country: US (occurrence: US)
  Receive Date: 20140225
  Receipt Date: 20140225
  Transmission Date: 20141002
  Serious: No
  Sender: FDA-Public Use
  Company Number: US-AMGEN-USASP2013071001

PATIENT
  Age: 46 Year
  Sex: Female
  Weight: 95.24 kg

DRUGS (4)
  1. ENBREL [Suspect]
     Indication: RHEUMATOID ARTHRITIS
     Dosage: 50 MG/ML, QWK
     Route: 058
  2. MULTIVITAMINS, PLAIN [Concomitant]
     Dosage: UNK
  3. POTASSIUM CHLORIDE [Concomitant]
     Dosage: 10 MEQ CR, UNK
  4. SAVELLA [Concomitant]
     Dosage: 25 MG, UNK

REACTIONS (1)
  - Drug ineffective [Unknown]
